FAERS Safety Report 9230089 (Version 1)
Quarter: 2013Q2

REPORT INFORMATION
  Report Type: Spontaneous
  Country: US (occurrence: None)
  Receive Date: 20130412
  Receipt Date: 20130412
  Transmission Date: 20140414
  Serious: Yes (Hospitalization)
  Sender: FDA-Public Use
  Company Number: None

PATIENT
  Sex: Male
  Weight: 145.15 kg

DRUGS (2)
  1. INFLIXIMAB [Suspect]
     Indication: COLITIS ULCERATIVE
     Dates: start: 20130401, end: 20130401
  2. REMICADE [Concomitant]

REACTIONS (17)
  - Pyrexia [None]
  - Chills [None]
  - Tremor [None]
  - Nausea [None]
  - Arthralgia [None]
  - Vomiting [None]
  - Pain [None]
  - Rash erythematous [None]
  - Yellow skin [None]
  - Movement disorder [None]
  - Paraesthesia [None]
  - Burning sensation [None]
  - Gait disturbance [None]
  - Feeling of body temperature change [None]
  - Musculoskeletal pain [None]
  - Arthralgia [None]
  - Arthralgia [None]
